FAERS Safety Report 6137548-8 (Version None)
Quarter: 2009Q1

REPORT INFORMATION
  Report Type: 
  Country: None (occurrence: None)
  Receive Date: 20090327
  Receipt Date: 20090313
  Transmission Date: 20090719
  Serious: Yes (Hospitalization)
  Sender: FDA-Public Use
  Company Number: SPI200900059

PATIENT
  Age: 67 Year
  Sex: Female
  Weight: 86 kg

DRUGS (12)
  1. AMITIZA [Suspect]
     Indication: CONSTIPATION
     Dosage: 24 MCG,  BID, ORAL; 24 MCG, TOOK 2 TABS ON MANY OCCASIONS, ORAL
     Route: 048
     Dates: start: 20080101, end: 20080101
  2. AMITIZA [Suspect]
     Indication: CONSTIPATION
     Dosage: 24 MCG,  BID, ORAL; 24 MCG, TOOK 2 TABS ON MANY OCCASIONS, ORAL
     Route: 048
     Dates: start: 20080101
  3. ADALAT [Concomitant]
  4. APRESOLINE (HYDRALAZINE HYDROCHLORIDE) TABLET, 25 MG [Concomitant]
  5. NOVOLOG [Concomitant]
  6. TRANDATE [Concomitant]
  7. IMDUR (ISOSORBIDE MONONITRATE) TABLET, 60 MG [Concomitant]
  8. COLAC [Concomitant]
  9. COLACE  VITRON-C (ASCORBIC  ACID, FERROUS FUMARATE) TABLET [Concomitant]
  10. LANTUS [Concomitant]
  11. LASIX LASIX /00032601/ (FUROSEMIDE) TABLET, 20 MG [Concomitant]
  12. PREDNISONE (PREDNISONE) TABLET, 20 MG [Concomitant]

REACTIONS (16)
  - ANOREXIA [None]
  - BACTERIA URINE IDENTIFIED [None]
  - BLOOD PRESSURE INCREASED [None]
  - DIARRHOEA [None]
  - DRUG INEFFECTIVE [None]
  - DYSPEPSIA [None]
  - ERUCTATION [None]
  - GLUCOSE URINE PRESENT [None]
  - HYPOPHAGIA [None]
  - INCORRECT DOSE ADMINISTERED [None]
  - REFUSAL OF TREATMENT BY PATIENT [None]
  - RENAL DISORDER [None]
  - RENAL FAILURE ACUTE [None]
  - RETCHING [None]
  - TUBULOINTERSTITIAL NEPHRITIS [None]
  - WEIGHT DECREASED [None]
